FAERS Safety Report 19160011 (Version 1)
Quarter: 2021Q2

REPORT INFORMATION
  Report Type: Spontaneous
  Country: CA (occurrence: CA)
  Receive Date: 20210421
  Receipt Date: 20210421
  Transmission Date: 20210717
  Serious: Yes (Hospitalization, Other)
  Sender: FDA-Public Use
  Company Number: CA-AMGEN-CANSP2021057202

PATIENT
  Sex: Male

DRUGS (7)
  1. FUROSEMIDE. [Concomitant]
     Active Substance: FUROSEMIDE
     Indication: HYPERTENSION
  2. MIDODRINE [Concomitant]
     Active Substance: MIDODRINE
     Dosage: 2.5 MILLIGRAM
  3. MIDODRINE [Concomitant]
     Active Substance: MIDODRINE
     Dosage: UNK UNK, TID
  4. OMEPRAZOLE. [Concomitant]
     Active Substance: OMEPRAZOLE
  5. LEVOTHYROXINE. [Concomitant]
     Active Substance: LEVOTHYROXINE
  6. DARBEPOETIN ALFA [Suspect]
     Active Substance: DARBEPOETIN ALFA
     Indication: ANAEMIA
     Dosage: UNK
     Route: 065
  7. DIAZOXIDE [Concomitant]
     Active Substance: DIAZOXIDE

REACTIONS (6)
  - Optic ischaemic neuropathy [Recovered/Resolved]
  - Blood creatinine increased [Recovered/Resolved]
  - Blood sodium decreased [Recovered/Resolved]
  - Blood pressure decreased [Recovered/Resolved]
  - Normocytic anaemia [Recovered/Resolved]
  - Blood albumin decreased [Recovered/Resolved]
